FAERS Safety Report 6804117-3 (Version None)
Quarter: 2010Q2

REPORT INFORMATION
  Report Type: 
  Country: None (occurrence: None)
  Receive Date: 20100628
  Receipt Date: 20070328
  Transmission Date: 20101027
  Serious: Yes (Hospitalization, Other)
  Sender: FDA-Public Use
  Company Number: US-PFIZER INC-2005141422

PATIENT

DRUGS (1)
  1. GEODON [Suspect]

REACTIONS (1)
  - AKATHISIA [None]
